FAERS Safety Report 17032977 (Version 4)
Quarter: 2020Q1

REPORT INFORMATION
  Report Type: Spontaneous
  Country: US (occurrence: US)
  Receive Date: 20191114
  Receipt Date: 20200310
  Transmission Date: 20200409
  Serious: Yes (Other)
  Sender: FDA-Public Use
  Company Number: US-PFIZER INC-2019490150

PATIENT
  Age: 27 Year
  Sex: Female

DRUGS (3)
  1. VENLAFAXINE HCL [Interacting]
     Active Substance: VENLAFAXINE HYDROCHLORIDE
     Dosage: 75 MG, DAILY, (EXTENDED RELEASE DOSAGE) (REDUCED)
  2. OLANZAPINE. [Interacting]
     Active Substance: OLANZAPINE
     Indication: PSYCHOTIC SYMPTOM
     Dosage: 5 MG, DAILY
  3. VENLAFAXINE HCL [Suspect]
     Active Substance: VENLAFAXINE HYDROCHLORIDE
     Indication: DEPRESSIVE SYMPTOM
     Dosage: 75 MG, 2X/DAY (75 MG EVERY 12 HOURS), (EXTENDED RELEASE DOSAGE)

REACTIONS (3)
  - Drug interaction [Unknown]
  - Sinus tachycardia [Recovered/Resolved]
  - Palpitations [Unknown]
